FAERS Safety Report 23705633 (Version 5)
Quarter: 2024Q4

REPORT INFORMATION
  Report Type: Spontaneous
  Country: FR (occurrence: FR)
  Receive Date: 20240404
  Receipt Date: 20241227
  Transmission Date: 20250115
  Serious: Yes (Hospitalization, Other)
  Sender: AUROBINDO
  Company Number: FR-ROCHE-3526603

PATIENT
  Age: 71 Year
  Sex: Female
  Weight: 78 kg

DRUGS (21)
  1. DOXORUBICIN [Suspect]
     Active Substance: DOXORUBICIN
     Indication: Diffuse large B-cell lymphoma
     Dosage: 92 MILLIGRAM(START DATE OF MOST RECENT DOSE OF STUDY DRUG PRIOR TO AE 29/FEB/2024)
     Route: 042
     Dates: start: 20231208
  2. PREDNISONE [Suspect]
     Active Substance: PREDNISONE
     Indication: Diffuse large B-cell lymphoma
     Dosage: 80 MILLIGRAM(START DATE OF MOST RECENT DOSE OF STUDY DRUG PRIOR TO AE 04/MAR/2024)
     Route: 048
     Dates: start: 20231207
  3. CYCLOPHOSPHAMIDE [Suspect]
     Active Substance: CYCLOPHOSPHAMIDE
     Indication: Diffuse large B-cell lymphoma
     Dosage: 1380 MILLIGRAM(START DATE OF MOST RECENT DOSE OF STUDY DRUG PRIOR TO AE 29/FEB/2024)
     Route: 042
     Dates: start: 20231208
  4. POLATUZUMAB VEDOTIN [Suspect]
     Active Substance: POLATUZUMAB VEDOTIN
     Indication: Diffuse large B-cell lymphoma
     Dosage: 146 MILLIGRAM(START DATE OF MOST RECENT DOSE OF STUDY DRUG PRIOR TO AE 29/FEB/2024)
     Route: 042
     Dates: start: 20231207
  5. RITUXIMAB [Suspect]
     Active Substance: RITUXIMAB
     Indication: Diffuse large B-cell lymphoma
     Dosage: 690 MILLIGRAM(START DATE OF MOST RECENT DOSE OF STUDY DRUG PRIOR TO AE 29/FEB/2024)
     Route: 042
     Dates: start: 20231207
  6. BACTRIM [Concomitant]
     Active Substance: SULFAMETHOXAZOLE\TRIMETHOPRIM
     Indication: Product used for unknown indication
     Dosage: 1 DOSAGE FORM, 3 TIMES A DAY
     Route: 065
     Dates: start: 20240125
  7. EBASTINE [Concomitant]
     Active Substance: EBASTINE
     Indication: Product used for unknown indication
     Dosage: 10 MILLIGRAM, ONCE A DAY
     Route: 065
  8. LEUCOVORIN CALCIUM [Concomitant]
     Active Substance: LEUCOVORIN CALCIUM
     Indication: Product used for unknown indication
     Dosage: 1 DOSAGE FORM
     Dates: start: 20240213, end: 20240213
  9. LEUCOVORIN CALCIUM [Concomitant]
     Active Substance: LEUCOVORIN CALCIUM
     Dosage: 5 MILLIGRAM, EVERY WEEK
     Route: 065
     Dates: start: 20240208, end: 20240613
  10. CEFIXIME [Concomitant]
     Active Substance: CEFIXIME
     Indication: Rhinitis
     Dosage: 2 DOSAGE FORM
     Route: 065
     Dates: start: 20240208, end: 20240215
  11. CEFIXIME [Concomitant]
     Active Substance: CEFIXIME
     Dosage: 400 MILLIGRAM, ONCE A DAY
     Route: 065
     Dates: start: 20240208, end: 20240214
  12. RETACRIT [Concomitant]
     Active Substance: EPOETIN ALFA-EPBX
     Indication: Anaemia
     Dosage: 30000 INTERNATIONAL UNIT, EVERY WEEK
     Route: 058
     Dates: start: 20240111
  13. VALACYCLOVIR HYDROCHLORIDE [Concomitant]
     Active Substance: VALACYCLOVIR HYDROCHLORIDE
     Indication: Product used for unknown indication
     Dosage: 500 MILLIGRAM, TWO TIMES A DAY
     Route: 065
     Dates: start: 20240125
  14. ACETAMINOPHEN [Concomitant]
     Active Substance: ACETAMINOPHEN
     Indication: Product used for unknown indication
     Dosage: 1000 MILLIGRAM, ONCE A DAY
     Route: 048
     Dates: start: 20240229, end: 20240229
  15. ACETAMINOPHEN [Concomitant]
     Active Substance: ACETAMINOPHEN
     Dosage: 1000 MILLIGRAM, ONCE A DAY
     Route: 048
     Dates: start: 20240311, end: 20240311
  16. TOBRAMYCIN [Concomitant]
     Active Substance: TOBRAMYCIN\TOBRAMYCIN SULFATE
     Indication: Conjunctivitis
     Dosage: UNK, ONCE A DAY
     Route: 047
     Dates: start: 20240208, end: 20240214
  17. ONDANSETRON [Concomitant]
     Active Substance: ONDANSETRON
     Indication: Nausea
     Dosage: 8 MILLIGRAM
     Route: 048
     Dates: start: 20240113
  18. CEFTRIAXONE [Concomitant]
     Active Substance: CEFTRIAXONE
     Indication: Product used for unknown indication
     Dosage: 1 GRAM, ONCE A DAY
     Route: 048
     Dates: start: 20240314, end: 20240320
  19. SODIUM BICARBONATE [Concomitant]
     Active Substance: SODIUM BICARBONATE
     Indication: Product used for unknown indication
     Dosage: 1.4 PERCENT
     Route: 048
     Dates: start: 20231207
  20. PRIMPERAN [Concomitant]
     Active Substance: METOCLOPRAMIDE HYDROCHLORIDE
     Indication: Nausea
     Dosage: 30 MILLIGRAM, AS NECESSARY
     Route: 048
  21. POLARAMINE [Concomitant]
     Active Substance: DEXCHLORPHENIRAMINE MALEATE
     Indication: Product used for unknown indication
     Dosage: 5 MILLIGRAM, ONCE A DAY
     Route: 042
     Dates: start: 20240229, end: 20240229

REACTIONS (2)
  - Febrile neutropenia [Recovered/Resolved]
  - Bacteriuria [Recovered/Resolved]

NARRATIVE: CASE EVENT DATE: 20240311
